FAERS Safety Report 5189089-2 (Version None)
Quarter: 2006Q4

REPORT INFORMATION
  Report Type: 
  Country: None (occurrence: None)
  Receive Date: 20061218
  Receipt Date: 20061210
  Transmission Date: 20070319
  Serious: Yes (Hospitalization, Other)
  Sender: FDA-Public Use
  Company Number: 2006-04-1001

PATIENT
  Age: 56 Year
  Sex: Male
  Weight: 78.0187 kg

DRUGS (9)
  1. PEG-INTRON [Suspect]
     Indication: HEPATITIS C
     Dosage: SEE IMAGE
     Route: 058
     Dates: start: 20030101, end: 20030101
  2. PEG-INTRON [Suspect]
     Indication: HEPATITIS C
     Dosage: SEE IMAGE
     Route: 058
     Dates: start: 20060317, end: 20060810
  3. PEG-INTRON [Suspect]
     Indication: HEPATITIS C
     Dosage: SEE IMAGE
     Route: 058
     Dates: start: 20061208
  4. RIBAVIRIN [Suspect]
     Indication: HEPATITIS C
     Dosage: PO
     Route: 048
     Dates: start: 20030101, end: 20030101
  5. RIBAVIRIN [Suspect]
     Indication: HEPATITIS C
     Dosage: PO
     Route: 048
     Dates: start: 20060317, end: 20060810
  6. RIBAVIRIN [Suspect]
     Indication: HEPATITIS C
     Dosage: PO
     Route: 048
     Dates: start: 20061208
  7. ZOLOFT [Concomitant]
  8. ZETIA [Concomitant]
  9. DRONABINOL [Concomitant]

REACTIONS (27)
  - BLOOD POTASSIUM DECREASED [None]
  - CARDIAC VALVE DISEASE [None]
  - CHEST PAIN [None]
  - CHROMATURIA [None]
  - DECREASED APPETITE [None]
  - DEPRESSION [None]
  - DIZZINESS [None]
  - DRY SKIN [None]
  - DYSURIA [None]
  - EXCORIATION [None]
  - FALL [None]
  - HALLUCINATION, AUDITORY [None]
  - HEADACHE [None]
  - HYPERHIDROSIS [None]
  - HYPOACUSIS [None]
  - HYPOTENSION [None]
  - INFLUENZA LIKE ILLNESS [None]
  - INSOMNIA [None]
  - LOSS OF CONSCIOUSNESS [None]
  - MOTION SICKNESS [None]
  - NIGHTMARE [None]
  - PNEUMONIA [None]
  - RASH [None]
  - SPUTUM DISCOLOURED [None]
  - SUICIDAL IDEATION [None]
  - VOMITING [None]
  - WEIGHT DECREASED [None]
